FAERS Safety Report 25089094 (Version 1)
Quarter: 2025Q1

REPORT INFORMATION
  Report Type: Spontaneous
  Country: US (occurrence: US)
  Receive Date: 20250318
  Receipt Date: 20250318
  Transmission Date: 20250408
  Serious: No
  Sender: ALKERMES
  Company Number: US-ALKERMES INC.-ALK-2025-000602

PATIENT
  Age: 63 Year
  Sex: Female

DRUGS (1)
  1. VIVITROL [Suspect]
     Active Substance: NALTREXONE
     Indication: Alcohol abuse
     Route: 030
     Dates: start: 202411

REACTIONS (2)
  - Brain fog [Unknown]
  - Memory impairment [Unknown]

NARRATIVE: CASE EVENT DATE: 20250201
